FAERS Safety Report 6303359-3 (Version None)
Quarter: 2009Q3

REPORT INFORMATION
  Report Type: 
  Country: None (occurrence: None)
  Receive Date: 20090810
  Receipt Date: 20081001
  Transmission Date: 20100115
  Serious: No
  Sender: FDA-Public Use
  Company Number: US-TYCO HEALTHCARE/MALLINCKRODT-T200801604

PATIENT
  Sex: Male
  Weight: 81.633 kg

DRUGS (12)
  1. PAMELOR [Suspect]
     Indication: PAIN
     Dosage: 50 MG, ONE CAPSULE TID
     Route: 048
     Dates: start: 19990101
  2. PAMELOR [Suspect]
     Indication: NERVOUS SYSTEM DISORDER
     Dosage: 100 MG, QD (HS)
     Route: 048
     Dates: start: 20001214
  3. PAMELOR [Suspect]
     Indication: DEPRESSION
     Dosage: 50 MG, QD (HS)
     Route: 048
     Dates: start: 20060101
  4. PAMELOR [Suspect]
     Indication: PAIN IN EXTREMITY
  5. PAMELOR [Suspect]
     Indication: BACK PAIN
  6. LORTAB [Concomitant]
     Indication: PAIN
     Dosage: 2 TABS, QD
     Route: 048
  7. CELEBREX [Concomitant]
     Indication: PAIN
     Dosage: 100 MG, BID
  8. PROTONIX                           /01263201/ [Concomitant]
     Indication: ABDOMINAL DISCOMFORT
     Dosage: UNK, QD
  9. LIPITOR [Concomitant]
     Indication: BLOOD CHOLESTEROL INCREASED
     Dosage: 10 MG, QD
  10. KLONOPIN [Concomitant]
     Dosage: UNK
  11. KLONOPIN [Concomitant]
     Dosage: 1 MG, BID
     Route: 048
     Dates: start: 20001214
  12. NORTRIPTYLINE HCL [Concomitant]
     Dosage: UNK

REACTIONS (6)
  - DRUG EFFECT DECREASED [None]
  - DYSGEUSIA [None]
  - INSOMNIA [None]
  - OFF LABEL USE [None]
  - POLLAKIURIA [None]
  - WRONG TECHNIQUE IN DRUG USAGE PROCESS [None]
